FAERS Safety Report 4788402-5 (Version None)
Quarter: 2005Q4

REPORT INFORMATION
  Report Type: 
  Country: None (occurrence: None)
  Receive Date: 20051003
  Receipt Date: 20050922
  Transmission Date: 20060501
  Serious: Yes (Other)
  Sender: FDA-Public Use
  Company Number: 2005132690

PATIENT
  Sex: Female

DRUGS (6)
  1. LIPITOR [Suspect]
     Indication: BLOOD CHOLESTEROL INCREASED
     Dosage: 5 MG (5 MG, 1 IN 1 D)
     Dates: start: 20041001, end: 20050919
  2. CELEBREX [Suspect]
     Indication: HIP ARTHROPLASTY
     Dosage: 200 MG (200 MG, 1 IN 1 D)
     Dates: start: 20000101
  3. ACETYLSALICYLIC ACID SRT [Concomitant]
  4. PROCRIT [Concomitant]
  5. ALL OTHER THERAPEUTIC PRODUCTS (ALL OTHER THERAPEUTIC PRODUCTS) [Concomitant]
  6. VITAMIN B12 FOR INJECTION (CYANOCOBALAMIN) [Concomitant]

REACTIONS (9)
  - ARTHRALGIA [None]
  - ARTHRITIS [None]
  - BLOOD CHOLESTEROL INCREASED [None]
  - BREAST CANCER FEMALE [None]
  - DRUG INEFFECTIVE [None]
  - FLUID RETENTION [None]
  - OEDEMA PERIPHERAL [None]
  - PAIN IN EXTREMITY [None]
  - ULCER [None]
